FAERS Safety Report 6232200-2 (Version None)
Quarter: 2009Q2

REPORT INFORMATION
  Report Type: 
  Country: None (occurrence: None)
  Receive Date: 20090615
  Receipt Date: 20090615
  Transmission Date: 20091009
  Serious: Yes (Life-Threatening)
  Sender: FDA-Public Use
  Company Number: None

PATIENT

DRUGS (1)
  1. ENOXAPARIN SODIUM [Suspect]
     Indication: ATRIAL FIBRILLATION
     Dosage: 100 MG BID SQ
     Route: 058
     Dates: start: 20090518, end: 20090525

REACTIONS (4)
  - ANAEMIA [None]
  - FALL [None]
  - FEMUR FRACTURE [None]
  - INTESTINAL DILATATION [None]
